FAERS Safety Report 8673103 (Version 3)
Quarter: 2015Q2

REPORT INFORMATION
  Report Type: Report from Study
  Country: US (occurrence: US)
  Receive Date: 20120719
  Receipt Date: 20150629
  Transmission Date: 20150821
  Serious: Yes (Death)
  Sender: FDA-Public Use
  Company Number: US-ROCHE-1088227

PATIENT
  Sex: Male

DRUGS (9)
  1. NEVANAC [Concomitant]
     Active Substance: NEPAFENAC
  2. TRAVATAN [Concomitant]
     Active Substance: TRAVOPROST
     Dosage: AT BED TIME
     Route: 065
  3. BETADINE [Concomitant]
     Active Substance: POVIDONE-IODINE
     Route: 047
  4. LIDOCAINE. [Concomitant]
     Active Substance: LIDOCAINE
     Route: 061
  5. COSOPT [Concomitant]
     Active Substance: DORZOLAMIDE HYDROCHLORIDE\TIMOLOL MALEATE
     Route: 065
  6. PROPARACAINE [Concomitant]
     Active Substance: PROPARACAINE
  7. VIGAMOX [Concomitant]
     Active Substance: MOXIFLOXACIN HYDROCHLORIDE
  8. LUCENTIS [Suspect]
     Active Substance: RANIBIZUMAB
     Indication: DIABETIC RETINAL OEDEMA
  9. LUCENTIS [Suspect]
     Active Substance: RANIBIZUMAB
     Indication: DIABETIC RETINOPATHY
     Route: 050
     Dates: start: 20080416

REACTIONS (2)
  - Off label use [Unknown]
  - Death [Fatal]
